FAERS Safety Report 9935317 (Version 2)
Quarter: 2014Q1

REPORT INFORMATION
  Report Type: Spontaneous
  Country: US (occurrence: US)
  Receive Date: 20140228
  Receipt Date: 20140228
  Transmission Date: 20141002
  Serious: Yes (Life-Threatening)
  Sender: FDA-Public Use
  Company Number: US-PFIZER INC-2014045057

PATIENT
  Age: 52 Year
  Sex: Male

DRUGS (6)
  1. IBUPROFEN [Suspect]
     Dosage: UNK
  2. CALCIUM ACETATE [Concomitant]
  3. ERYTHROPOIETIN [Concomitant]
  4. ALBUTEROL [Concomitant]
     Dosage: UNK
  5. ACETAMINOPHEN [Concomitant]
  6. OXYCODONE [Concomitant]

REACTIONS (2)
  - Hyperkalaemia [Recovered/Resolved]
  - Quadriplegia [Recovered/Resolved]
